FAERS Safety Report 4691177-1 (Version None)
Quarter: 2005Q2

REPORT INFORMATION
  Report Type: 
  Country: None (occurrence: None)
  Receive Date: 20050610
  Receipt Date: 20050527
  Transmission Date: 20051028
  Serious: Yes (Hospitalization, Other)
  Sender: FDA-Public Use
  Company Number: 210217

PATIENT
  Age: 76 Year
  Sex: Male

DRUGS (5)
  1. RITUXAN [Suspect]
     Dosage: 735 MG,1/WEEK
     Dates: start: 20040202, end: 20040308
  2. RITUXAN [Suspect]
     Dosage: 735 MG,1/WEEK
     Dates: start: 20000101
  3. PREDNISONE [Concomitant]
  4. LASIX [Concomitant]
  5. LEVAQUIN [Concomitant]

REACTIONS (6)
  - ABDOMINAL DISTENSION [None]
  - COUGH [None]
  - GENERALISED OEDEMA [None]
  - PERICARDIAL EFFUSION [None]
  - PLEURAL EFFUSION [None]
  - WEIGHT INCREASED [None]
